FAERS Safety Report 13952315 (Version 1)
Quarter: 2017Q3

REPORT INFORMATION
  Report Type: Spontaneous
  Country: US (occurrence: US)
  Receive Date: 20170911
  Receipt Date: 20170911
  Transmission Date: 20171128
  Serious: No
  Sender: FDA-Public Use
  Company Number: US-TEVA-697317USA

PATIENT
  Sex: Male
  Weight: 92.62 kg

DRUGS (2)
  1. FENTANYL. [Suspect]
     Active Substance: FENTANYL
     Indication: PAIN MANAGEMENT
     Dates: start: 201602
  2. FENTANYL. [Suspect]
     Active Substance: FENTANYL
     Indication: NEURALGIA

REACTIONS (4)
  - Product adhesion issue [Unknown]
  - Drug effect decreased [Unknown]
  - Pain [Unknown]
  - Application site irritation [Unknown]
